FAERS Safety Report 12171994 (Version 3)
Quarter: 2016Q2

REPORT INFORMATION
  Report Type: Spontaneous
  Country: US (occurrence: US)
  Receive Date: 20160311
  Receipt Date: 20160505
  Transmission Date: 20160815
  Serious: No
  Sender: FDA-Public Use
  Company Number: US-GLAXOSMITHKLINE-US2016033310

PATIENT
  Sex: Female

DRUGS (5)
  1. COREG [Concomitant]
     Active Substance: CARVEDILOL
  2. VENTOLIN [Suspect]
     Active Substance: ALBUTEROL SULFATE
     Dosage: UNK UNK, PRN
     Route: 055
  3. PROVERA [Concomitant]
     Active Substance: MEDROXYPROGESTERONE ACETATE
  4. VENTOLIN [Suspect]
     Active Substance: ALBUTEROL SULFATE
     Indication: CHRONIC OBSTRUCTIVE PULMONARY DISEASE
     Dosage: 2 PUFF(S), 1D
     Route: 055
     Dates: start: 2011
  5. ESTRACE [Concomitant]
     Active Substance: ESTRADIOL

REACTIONS (2)
  - Oropharyngeal pain [Recovered/Resolved]
  - Product quality issue [Unknown]
